FAERS Safety Report 6301720-4 (Version None)
Quarter: 2009Q3

REPORT INFORMATION
  Report Type: 
  Country: None (occurrence: None)
  Receive Date: 20090807
  Receipt Date: 20090729
  Transmission Date: 20100115
  Serious: Yes (Hospitalization)
  Sender: FDA-Public Use
  Company Number: US-ELI_LILLY_AND_COMPANY-US200907006556

PATIENT
  Age: 30 Year
  Sex: Female
  Weight: 81 kg

DRUGS (5)
  1. FLUOXETINE HYDROCHLORIDE [Suspect]
     Dosage: 40 MG, DAILY (1/D)
     Route: 065
  2. DESIPRAMINE HCL [Interacting]
     Dosage: 250 MG, DAILY (1/D)
     Route: 065
  3. THIORIDAZINE HCL [Concomitant]
     Dosage: 400 MG, DAILY (1/D)
     Route: 065
  4. LEVOTHYROXINE [Concomitant]
     Dosage: 0.4 MG, DAILY (1/D)
     Route: 065
  5. CARBAMAZEPINE [Concomitant]
     Dosage: 300 MG, 2/D
     Route: 065

REACTIONS (5)
  - ANTIDEPRESSANT DRUG LEVEL [None]
  - DIZZINESS [None]
  - DRUG INTERACTION [None]
  - ELECTROCARDIOGRAM ABNORMAL [None]
  - VISION BLURRED [None]
